FAERS Safety Report 20983246 (Version 1)
Quarter: 2022Q2

REPORT INFORMATION
  Report Type: Spontaneous
  Country: CN (occurrence: CN)
  Receive Date: 20220620
  Receipt Date: 20220620
  Transmission Date: 20220720
  Serious: Yes (Life-Threatening, Hospitalization, Other)
  Sender: FDA-Public Use
  Company Number: CN-PFIZER INC-PV202200004065

PATIENT
  Age: 53 Year
  Sex: Male
  Weight: 70 kg

DRUGS (2)
  1. DALTEPARIN SODIUM [Suspect]
     Active Substance: DALTEPARIN SODIUM
     Indication: Fibrin D dimer increased
     Dosage: 5000 IU, 2X/DAY
     Route: 058
     Dates: start: 20220526, end: 20220531
  2. RIVAROXABAN [Concomitant]
     Active Substance: RIVAROXABAN
     Indication: Fibrin D dimer increased
     Dosage: 15 MG, 2X/DAY
     Route: 048
     Dates: start: 20220601, end: 20220607

REACTIONS (2)
  - Heparin-induced thrombocytopenia [Unknown]
  - Cardiac failure acute [Unknown]

NARRATIVE: CASE EVENT DATE: 20220601
